FAERS Safety Report 18404343 (Version 2)
Quarter: 2022Q2

REPORT INFORMATION
  Report Type: Spontaneous
  Country: US (occurrence: US)
  Receive Date: 20201020
  Receipt Date: 20220517
  Transmission Date: 20220721
  Serious: No
  Sender: FDA-Public Use
  Company Number: US-PFIZER INC-2020399867

PATIENT
  Age: 46 Year
  Sex: Male

DRUGS (1)
  1. SOMAVERT [Suspect]
     Active Substance: PEGVISOMANT
     Indication: Acromegaly
     Dosage: 30 MG, DAILY
     Route: 058
     Dates: start: 2013

REACTIONS (4)
  - Arthralgia [Unknown]
  - Headache [Unknown]
  - Lipohypertrophy [Unknown]
  - Injection site reaction [Recovered/Resolved]
